FAERS Safety Report 16609117 (Version 1)
Quarter: 2019Q3

REPORT INFORMATION
  Report Type: Spontaneous
  Country: FR (occurrence: FR)
  Receive Date: 20190722
  Receipt Date: 20190722
  Transmission Date: 20191004
  Serious: Yes (Death, Other)
  Sender: FDA-Public Use
  Company Number: FR-NAPPMUNDI-GBR-2019-0067990

PATIENT
  Age: 8 Year
  Sex: Female

DRUGS (38)
  1. MORPHINE SULFATE. [Suspect]
     Active Substance: MORPHINE SULFATE
     Indication: HEADACHE
     Dosage: UNK
     Route: 065
     Dates: start: 20161107
  2. HOLOXAN [Suspect]
     Active Substance: IFOSFAMIDE
     Dosage: CURE N4: D1
     Route: 065
     Dates: start: 20160420
  3. HOLOXAN [Suspect]
     Active Substance: IFOSFAMIDE
     Dosage: CURE N2: D1
     Route: 065
     Dates: start: 20160309
  4. ENDOXAN                            /00021102/ [Suspect]
     Active Substance: CYCLOPHOSPHAMIDE
     Indication: OFF LABEL USE
     Dosage: AT DINNER 1
     Route: 065
     Dates: start: 20161106
  5. DACTINOMYCIN [Suspect]
     Active Substance: DACTINOMYCIN
     Dosage: CURE N5: D1
     Route: 065
     Dates: start: 20160512
  6. RIVOTRIL [Concomitant]
     Active Substance: CLONAZEPAM
     Indication: PRODUCT USED FOR UNKNOWN INDICATION
     Dosage: IF NEEDED 1
     Route: 065
  7. NAVELBINE [Suspect]
     Active Substance: VINORELBINE TARTRATE
     Indication: OFF LABEL USE
  8. VINCRISTINE [Suspect]
     Active Substance: VINCRISTINE
     Indication: EMBRYONAL RHABDOMYOSARCOMA
     Dosage: CURE N9: D1
     Route: 065
     Dates: start: 20160816
  9. VINCRISTINE [Suspect]
     Active Substance: VINCRISTINE
     Dosage: CURE N6: D1
     Route: 065
     Dates: start: 20160604
  10. VINCRISTINE [Suspect]
     Active Substance: VINCRISTINE
     Dosage: CURE N2: D1
     Route: 065
     Dates: start: 20160309
  11. HOLOXAN [Suspect]
     Active Substance: IFOSFAMIDE
     Dosage: CURE N1: D1
     Route: 065
     Dates: start: 20160217
  12. DACTINOMYCIN [Suspect]
     Active Substance: DACTINOMYCIN
     Dosage: CURE OF ACTINOMYCINE N1
     Route: 065
     Dates: start: 20160906
  13. ONDANSETRON [Concomitant]
     Active Substance: ONDANSETRON
     Indication: PRODUCT USED FOR UNKNOWN INDICATION
     Route: 065
  14. HOLOXAN [Suspect]
     Active Substance: IFOSFAMIDE
     Indication: EMBRYONAL RHABDOMYOSARCOMA
     Dosage: CURE N9: D1
     Route: 065
     Dates: start: 20160816
  15. HOLOXAN [Suspect]
     Active Substance: IFOSFAMIDE
     Dosage: CURE N3: D1
     Route: 065
     Dates: start: 20160330
  16. NAVELBINE [Suspect]
     Active Substance: VINORELBINE TARTRATE
     Indication: EMBRYONAL RHABDOMYOSARCOMA
     Dosage: 21 MG, WEEKLY (CYCLE 1 DAY 1)
     Route: 065
     Dates: start: 20161006, end: 20161021
  17. DACTINOMYCIN [Suspect]
     Active Substance: DACTINOMYCIN
     Indication: EMBRYONAL RHABDOMYOSARCOMA
     Dosage: CURE OF ACTINOMYCINE N2
     Route: 065
     Dates: start: 20160920
  18. VINCRISTINE [Suspect]
     Active Substance: VINCRISTINE
     Dosage: CURE N8: D1
     Route: 065
     Dates: start: 20160718
  19. VINCRISTINE [Suspect]
     Active Substance: VINCRISTINE
     Dosage: CURE N1: D1
     Route: 065
     Dates: start: 20160217
  20. HOLOXAN [Suspect]
     Active Substance: IFOSFAMIDE
     Dosage: CURE N6: D1
     Route: 065
     Dates: start: 20160604
  21. ENDOXAN                            /00021102/ [Suspect]
     Active Substance: CYCLOPHOSPHAMIDE
     Indication: EMBRYONAL RHABDOMYOSARCOMA
     Dosage: AT DINNER 1
     Route: 065
     Dates: start: 20161105
  22. DACTINOMYCIN [Suspect]
     Active Substance: DACTINOMYCIN
     Dosage: CURE N2: D1
     Route: 065
     Dates: start: 20160309
  23. VINCRISTINE [Suspect]
     Active Substance: VINCRISTINE
     Dosage: CURE N4: D1
     Route: 065
     Dates: start: 20160420
  24. ENDOXAN                            /00021102/ [Suspect]
     Active Substance: CYCLOPHOSPHAMIDE
     Dosage: AT DINNER 1
     Route: 065
     Dates: start: 20161104
  25. DACTINOMYCIN [Suspect]
     Active Substance: DACTINOMYCIN
     Dosage: CURE N8: D1
     Route: 065
     Dates: start: 20160718
  26. DACTINOMYCIN [Suspect]
     Active Substance: DACTINOMYCIN
     Dosage: CURE N3: D1
     Route: 065
     Dates: start: 20160330
  27. DACTINOMYCIN [Suspect]
     Active Substance: DACTINOMYCIN
     Dosage: CURE N1: D1
     Route: 065
     Dates: start: 20160217
  28. VINCRISTINE [Suspect]
     Active Substance: VINCRISTINE
     Dosage: CURE N5: D1
     Route: 065
     Dates: start: 20160512
  29. MICROPAKINE [Concomitant]
     Active Substance: VALPROATE SODIUM
     Indication: PRODUCT USED FOR UNKNOWN INDICATION
     Dosage: 200 MG, DAILY PROLONGED RELEASED
     Route: 065
  30. HOLOXAN [Suspect]
     Active Substance: IFOSFAMIDE
     Dosage: CURE N8: D1
     Route: 065
     Dates: start: 20160718
  31. HOLOXAN [Suspect]
     Active Substance: IFOSFAMIDE
     Dosage: CURE N7: D1
     Route: 065
     Dates: start: 20160625
  32. HOLOXAN [Suspect]
     Active Substance: IFOSFAMIDE
     Dosage: CURE N5: D1
     Route: 065
     Dates: start: 20160512
  33. ENDOXAN                            /00021102/ [Suspect]
     Active Substance: CYCLOPHOSPHAMIDE
     Dosage: 21 MG, DAILY
     Route: 065
     Dates: start: 20161006
  34. DACTINOMYCIN [Suspect]
     Active Substance: DACTINOMYCIN
     Dosage: CURE N9: D1
     Route: 065
     Dates: start: 20160816
  35. DACTINOMYCIN [Suspect]
     Active Substance: DACTINOMYCIN
     Dosage: CURE N4: D1
     Route: 065
     Dates: start: 20160420
  36. VINCRISTINE [Suspect]
     Active Substance: VINCRISTINE
     Dosage: CURE N7: D1
     Route: 065
     Dates: start: 20160625
  37. VINCRISTINE [Suspect]
     Active Substance: VINCRISTINE
     Dosage: CURE N3: D1
     Route: 065
     Dates: start: 20160330
  38. PARACETAMOL [Concomitant]
     Active Substance: ACETAMINOPHEN
     Indication: PRODUCT USED FOR UNKNOWN INDICATION
     Dosage: IF NEEDED 1
     Route: 065

REACTIONS (12)
  - Dyspnoea [Fatal]
  - Arrhythmia [Fatal]
  - Epistaxis [Fatal]
  - Epilepsy [Fatal]
  - Muscle spasms [Fatal]
  - Vomiting [Fatal]
  - Meningitis noninfective [Fatal]
  - Metastases to meninges [Fatal]
  - Metastases to meninges [Fatal]
  - Off label use [Fatal]
  - Bradypnoea [Fatal]
  - Headache [Fatal]

NARRATIVE: CASE EVENT DATE: 20160801
